FAERS Safety Report 9465665 (Version 1)
Quarter: 2013Q3

REPORT INFORMATION
  Report Type: Spontaneous
  Country: CH (occurrence: CH)
  Receive Date: 20130820
  Receipt Date: 20130820
  Transmission Date: 20140515
  Serious: Yes (Other)
  Sender: FDA-Public Use
  Company Number: CH-PFIZER INC-2013239300

PATIENT
  Age: 80 Year
  Sex: Female

DRUGS (5)
  1. CORDARONE [Suspect]
     Dosage: 200 MG, DAILY
     Route: 048
     Dates: start: 20130621
  2. XARELTO [Interacting]
     Indication: ATRIAL FIBRILLATION
     Dosage: 20 MG, DAILY
     Route: 048
     Dates: start: 20130621
  3. LISINOPRIL [Concomitant]
     Dosage: 10 MG, UNK
     Dates: start: 20130625
  4. TORASEMIDE [Concomitant]
     Dosage: 5 MG, UNK
     Dates: start: 20130702
  5. KALIUM HAUSMANN [Concomitant]
     Dosage: 20 MMOL, UNK
     Dates: start: 20130702

REACTIONS (2)
  - Drug interaction [Not Recovered/Not Resolved]
  - Haemarthrosis [Not Recovered/Not Resolved]
